FAERS Safety Report 10366961 (Version 1)
Quarter: 2014Q3

REPORT INFORMATION
  Report Type: Spontaneous
  Country: US (occurrence: US)
  Receive Date: 20140807
  Receipt Date: 20140807
  Transmission Date: 20150326
  Serious: No
  Sender: FDA-Public Use
  Company Number: 2013SP005144

PATIENT
  Age: 52 Year
  Sex: Female

DRUGS (5)
  1. FOSPHENYTOIN SODIUM. [Suspect]
     Active Substance: FOSPHENYTOIN SODIUM
     Indication: STATUS EPILEPTICUS
     Route: 042
  2. PHENYTOIN SODIUM. [Suspect]
     Active Substance: PHENYTOIN SODIUM
     Indication: STATUS EPILEPTICUS
     Route: 042
  3. MEROPENEM. [Concomitant]
     Active Substance: MEROPENEM
  4. VANCOMYCIN [Concomitant]
     Active Substance: VANCOMYCIN
  5. FLUCONAZOLE. [Concomitant]
     Active Substance: FLUCONAZOLE

REACTIONS (1)
  - Drug level above therapeutic [Unknown]
